FAERS Safety Report 9424708 (Version 3)
Quarter: 2014Q1

REPORT INFORMATION
  Report Type: Spontaneous
  Country: CA (occurrence: CA)
  Receive Date: 20130729
  Receipt Date: 20140110
  Transmission Date: 20141002
  Serious: Yes (Other)
  Sender: FDA-Public Use
  Company Number: CA-PFIZER INC-2013218345

PATIENT
  Age: 36 Year
  Sex: Female

DRUGS (2)
  1. CHAMPIX [Suspect]
     Indication: SMOKING CESSATION THERAPY
     Dosage: 0.5 MG, UNK
     Route: 048
     Dates: start: 20130703, end: 20130710
  2. CHAMPIX [Interacting]
     Dosage: 1.0 MG, UNK
     Dates: start: 20130711, end: 20130719

REACTIONS (29)
  - Loss of consciousness [Recovered/Resolved]
  - Fall [Recovered/Resolved]
  - Alcohol interaction [Unknown]
  - Tooth fracture [Not Recovered/Not Resolved]
  - Amnesia [Recovered/Resolved]
  - Hypersomnia [Recovered/Resolved]
  - Fatigue [Not Recovered/Not Resolved]
  - Dizziness [Recovering/Resolving]
  - Post-traumatic headache [Recovering/Resolving]
  - Anxiety [Not Recovered/Not Resolved]
  - Disturbance in attention [Unknown]
  - Pain in jaw [Not Recovered/Not Resolved]
  - Mobility decreased [Unknown]
  - Asthenia [Unknown]
  - Lip swelling [Unknown]
  - Lip injury [Unknown]
  - Toothache [Recovered/Resolved]
  - Emotional distress [Not Recovered/Not Resolved]
  - Thinking abnormal [Not Recovered/Not Resolved]
  - Nausea [Unknown]
  - Concussion [Recovered/Resolved]
  - Speech disorder [Recovered/Resolved]
  - Asthenia [Unknown]
  - Depression [Not Recovered/Not Resolved]
  - Lethargy [Unknown]
  - Jaw disorder [Unknown]
  - Psychiatric symptom [Not Recovered/Not Resolved]
  - Sleep disorder [Not Recovered/Not Resolved]
  - Social avoidant behaviour [Not Recovered/Not Resolved]
